FAERS Safety Report 14373138 (Version 1)
Quarter: 2018Q1

REPORT INFORMATION
  Report Type: Spontaneous
  Country: US (occurrence: US)
  Receive Date: 20180110
  Receipt Date: 20180110
  Transmission Date: 20180509
  Serious: Yes (Other)
  Sender: FDA-Public Use
  Company Number: US-MYLANLABS-2018M1000277

PATIENT
  Age: 59 Year
  Sex: Female

DRUGS (2)
  1. LIDOCAINE. [Suspect]
     Active Substance: LIDOCAINE
     Dosage: 6MG/KG WITH BOLUS DOSING. FIVE 50 MG BOLUSES EVERY FIVE MINUTES WITH A BACKGROUND CONTINUOUS INFU...
     Route: 042
  2. LIDOCAINE. [Suspect]
     Active Substance: LIDOCAINE
     Indication: PRODUCT USED FOR UNKNOWN INDICATION
     Dosage: CONTINUOUS INFUSION OF 150MG (3 MG/KG) AT FIRST DOSE
     Route: 042

REACTIONS (1)
  - Hypertension [Recovered/Resolved]
